FAERS Safety Report 5977459-1 (Version None)
Quarter: 2008Q4

REPORT INFORMATION
  Report Type: 
  Country: None (occurrence: None)
  Receive Date: 20081203
  Receipt Date: 20081201
  Transmission Date: 20090506
  Serious: Yes (Death)
  Sender: FDA-Public Use
  Company Number: B0547794B

PATIENT
  Sex: Female
  Weight: 0.8 kg

DRUGS (4)
  1. ZIDOVUDINE [Suspect]
     Indication: HIV INFECTION
     Dosage: 600MG PER DAY
  2. VIDEX [Suspect]
     Indication: HIV INFECTION
     Dosage: 400MG PER DAY
     Dates: end: 20080613
  3. KALETRA [Suspect]
     Indication: HIV INFECTION
  4. LAMIVUDINE [Suspect]
     Indication: HIV INFECTION
     Dosage: 300MG PER DAY
     Dates: start: 20080613

REACTIONS (5)
  - ABDOMINAL DISTENSION [None]
  - DEATH NEONATAL [None]
  - NECROTISING ENTEROCOLITIS NEONATAL [None]
  - PNEUMATOSIS [None]
  - PREMATURE BABY [None]
